FAERS Safety Report 13575901 (Version 1)
Quarter: 2017Q2

REPORT INFORMATION
  Report Type: Spontaneous
  Country: US (occurrence: US)
  Receive Date: 20170524
  Receipt Date: 20170524
  Transmission Date: 20170830
  Serious: Yes (Hospitalization, Other)
  Sender: FDA-Public Use
  Company Number: US-ZYDUS-015181

PATIENT
  Age: 19 Year
  Sex: Female

DRUGS (1)
  1. LAMOTRIGINE. [Suspect]
     Active Substance: LAMOTRIGINE
     Indication: BIPOLAR DISORDER
     Route: 065

REACTIONS (15)
  - Acute kidney injury [Recovering/Resolving]
  - Visual field defect [Recovering/Resolving]
  - Leukocytosis [Recovering/Resolving]
  - Eosinophilia [Recovering/Resolving]
  - Arthralgia [Recovering/Resolving]
  - Transaminases increased [Recovering/Resolving]
  - Blood creatinine abnormal [Recovering/Resolving]
  - Keratic precipitates [Recovering/Resolving]
  - Antinuclear antibody positive [Recovering/Resolving]
  - Tubulointerstitial nephritis and uveitis syndrome [Recovering/Resolving]
  - Retinal pigment epitheliopathy [Recovering/Resolving]
  - Visual acuity reduced [Recovering/Resolving]
  - Photosensitivity reaction [Recovering/Resolving]
  - Rash [Recovering/Resolving]
  - Beta 2 microglobulin increased [Recovering/Resolving]
